FAERS Safety Report 5194858-9 (Version None)
Quarter: 2006Q4

REPORT INFORMATION
  Report Type: 
  Country: None (occurrence: None)
  Receive Date: 20061227
  Receipt Date: 20061215
  Transmission Date: 20070319
  Serious: Yes (Hospitalization)
  Sender: FDA-Public Use
  Company Number: SPV1-2006-02198

PATIENT
  Age: 16 Year
  Sex: Male

DRUGS (2)
  1. ADDERALL XR 10 [Suspect]
     Indication: ATTENTION DEFICIT/HYPERACTIVITY DISORDER
     Dosage: 20 MG, 1X/DAY: QD, ORAL
     Route: 048
     Dates: start: 20061208, end: 20061210
  2. PROZAC [Concomitant]

REACTIONS (7)
  - DIZZINESS [None]
  - FACIAL PALSY [None]
  - FATIGUE [None]
  - HYPOAESTHESIA ORAL [None]
  - JOINT STIFFNESS [None]
  - MUSCLE TIGHTNESS [None]
  - PHARYNGEAL HYPOAESTHESIA [None]
